FAERS Safety Report 8118516 (Version 8)
Quarter: 2013Q1

REPORT INFORMATION
  Report Type: Spontaneous
  Country: US (occurrence: US)
  Receive Date: 20110902
  Receipt Date: 20130315
  Transmission Date: 20140127
  Serious: Yes (Other)
  Sender: FDA-Public Use
  Company Number: US-ELI_LILLY_AND_COMPANY-US201103008943

PATIENT
  Age: 83 None
  Sex: Female

DRUGS (23)
  1. FORTEO [Suspect]
     Indication: OSTEOPOROSIS
     Dosage: 20 UG, QD
     Route: 065
     Dates: start: 20110320
  2. FORTEO [Suspect]
     Dosage: 20 UG, QD
     Route: 065
  3. FORTEO [Suspect]
     Dosage: 20 UG, QD
     Route: 065
  4. FORTEO [Suspect]
     Dosage: 20 UG, QD
     Route: 065
  5. FORTEO [Suspect]
     Dosage: 20 UG, QD
     Route: 065
  6. FORTEO [Suspect]
     Dosage: 20 UG, QD
     Route: 065
  7. FORTEO [Suspect]
     Dosage: 20 UG, QD
     Route: 065
  8. FORTEO [Suspect]
     Dosage: 20 UG, QD
     Route: 065
  9. FORTEO [Suspect]
     Dosage: 20 UG, QD
     Route: 065
  10. FORTEO [Suspect]
     Dosage: 20 UG, QD
     Route: 065
  11. FORTEO [Suspect]
     Dosage: 20 UG, QD
     Route: 065
  12. ADVAIR [Concomitant]
     Dosage: 1 UNK, UNK
  13. ALBUTEROL [Concomitant]
     Dosage: 90 UG, UNK
  14. ASPIRIN [Concomitant]
     Dosage: 1 DF, QD
  15. VITAMIN D3 [Concomitant]
     Dosage: 2000 IU, QD
  16. OSCAL D                            /00944201/ [Concomitant]
     Dosage: 500 MG, QD
  17. VITAMIN C [Concomitant]
     Dosage: 500 MG, QD
  18. AMOXICILLIN [Concomitant]
     Dosage: 2000 MG, PRN
  19. DICYCLOVERINE HYDROCHLORIDE [Concomitant]
     Dosage: 40 MG, QD
  20. FAMOTIDINE [Concomitant]
     Dosage: 20 MG, QD
  21. SIMVASTATIN [Concomitant]
     Dosage: 40 MG, QD
  22. SERTRALINE HYDROCHLORIDE [Concomitant]
     Dosage: 100 MG, UNK
  23. LORAZEPAM [Concomitant]
     Dosage: 5 MG, UNK

REACTIONS (32)
  - Temporal arteritis [Not Recovered/Not Resolved]
  - Papilloedema [Unknown]
  - Optic nerve disorder [Unknown]
  - Accident [Unknown]
  - Wrist fracture [Unknown]
  - Scotoma [Unknown]
  - Chronic obstructive pulmonary disease [Not Recovered/Not Resolved]
  - Visual field defect [Not Recovered/Not Resolved]
  - Altered visual depth perception [Unknown]
  - Cardiac failure congestive [Not Recovered/Not Resolved]
  - Basal cell carcinoma [Recovering/Resolving]
  - Tremor [Unknown]
  - Spinal compression fracture [Unknown]
  - Back pain [Unknown]
  - Axillary pain [Not Recovered/Not Resolved]
  - Spinal pain [Not Recovered/Not Resolved]
  - Discomfort [Not Recovered/Not Resolved]
  - Fatigue [Unknown]
  - Anxiety [Unknown]
  - Dyspnoea [Not Recovered/Not Resolved]
  - Arthralgia [Unknown]
  - Chest pain [Unknown]
  - Pain [Not Recovered/Not Resolved]
  - Musculoskeletal chest pain [Not Recovered/Not Resolved]
  - Drug dose omission [Unknown]
  - Eye disorder [Unknown]
  - Visual acuity reduced [Unknown]
  - Hypotension [Unknown]
  - Throat irritation [Unknown]
  - Bronchitis [Not Recovered/Not Resolved]
  - Pneumonia [Unknown]
  - Lung infection [Unknown]
